FAERS Safety Report 16206568 (Version 1)
Quarter: 2019Q2

REPORT INFORMATION
  Report Type: Spontaneous
  Country: US (occurrence: US)
  Receive Date: 20190312
  Receipt Date: 20190312
  Transmission Date: 20190711
  Serious: Yes (Life-Threatening, Hospitalization, Disabling, Congenital Anomaly, Other)
  Sender: FDA-Public Use
  Company Number: None

PATIENT
  Age: 48 Year
  Sex: Male
  Weight: 102.06 kg

DRUGS (5)
  1. SEROTONIN [Suspect]
     Active Substance: SEROTONIN
     Indication: PRODUCT USED FOR UNKNOWN INDICATION
     Dates: start: 1970
  2. TEGRETOL [Suspect]
     Active Substance: CARBAMAZEPINE
  3. DEPAKOTE [Suspect]
     Active Substance: DIVALPROEX SODIUM
  4. ZYPREXA [Suspect]
     Active Substance: OLANZAPINE
  5. LITHIUM. [Suspect]
     Active Substance: LITHIUM

REACTIONS (7)
  - Brain injury [None]
  - Scar [None]
  - Head injury [None]
  - Pain [None]
  - Haemorrhage [None]
  - Victim of crime [None]
  - Road traffic accident [None]

NARRATIVE: CASE EVENT DATE: 2006
